FAERS Safety Report 19646733 (Version 1)
Quarter: 2021Q3

REPORT INFORMATION
  Report Type: Spontaneous
  Country: US (occurrence: US)
  Receive Date: 20210802
  Receipt Date: 20210802
  Transmission Date: 20211014
  Serious: Yes (Other)
  Sender: FDA-Public Use
  Company Number: None

PATIENT
  Sex: Female

DRUGS (2)
  1. ESTRACE [Suspect]
     Active Substance: ESTRADIOL
  2. IMVEXXY [Suspect]
     Active Substance: ESTRADIOL

REACTIONS (3)
  - Pruritus [None]
  - Skin irritation [None]
  - Burning sensation [None]
